FAERS Safety Report 21799530 (Version 1)
Quarter: 2022Q4

REPORT INFORMATION
  Report Type: Spontaneous
  Country: NL (occurrence: NL)
  Receive Date: 20221230
  Receipt Date: 20221230
  Transmission Date: 20230112
  Serious: Yes (Other)
  Sender: FDA-Public Use
  Company Number: None

PATIENT
  Sex: Female
  Weight: 87 kg

DRUGS (2)
  1. METFORMIN [Suspect]
     Active Substance: METFORMIN HYDROCHLORIDE
     Indication: Gestational diabetes
     Dosage: 1000 MG, QD (2X PER DAG 1X 1TABLET 1X 2 TABLETTEN , GENEESMIDDEL VOORGESCHREVEN DOOR ARTS: JA  )
     Route: 065
     Dates: start: 20220920
  2. METFORMIN [Suspect]
     Active Substance: METFORMIN HYDROCHLORIDE
     Dosage: 500 MG, QD (2X PER DAG 1X 1TABLET 1X 2 TABLETTEN)
     Route: 065
     Dates: start: 20220920

REACTIONS (2)
  - Placental insufficiency [Recovered/Resolved]
  - Maternal exposure during pregnancy [Unknown]
